FAERS Safety Report 9241867 (Version 1)
Quarter: 2013Q2

REPORT INFORMATION
  Report Type: Spontaneous
  Country: US (occurrence: US)
  Receive Date: 20130419
  Receipt Date: 20130419
  Transmission Date: 20140414
  Serious: Yes (Other)
  Sender: FDA-Public Use
  Company Number: US-JNJFOC-20130409084

PATIENT
  Sex: Female

DRUGS (1)
  1. NICOTINE POLACRILEX 2 MG [Suspect]
     Indication: PRODUCT USED FOR UNKNOWN INDICATION
     Route: 065

REACTIONS (3)
  - Nicotine dependence [Unknown]
  - Intentional drug misuse [Unknown]
  - Drug administration error [Unknown]
